FAERS Safety Report 5043887-4 (Version None)
Quarter: 2006Q3

REPORT INFORMATION
  Report Type: 
  Country: None (occurrence: None)
  Receive Date: 20060706
  Receipt Date: 20060518
  Transmission Date: 20061208
  Serious: Yes (Other)
  Sender: FDA-Public Use
  Company Number: PHBS2006BE07642

PATIENT
  Age: 10 Year
  Sex: Female
  Weight: 25.1 kg

DRUGS (3)
  1. DESONIDE [Concomitant]
     Indication: DERMATITIS ATOPIC
     Dosage: UNK, QD
     Route: 061
     Dates: start: 20040101, end: 20040101
  2. ELIDEL [Suspect]
     Indication: DERMATITIS ATOPIC
     Dosage: 30 G
     Route: 061
     Dates: start: 20030601
  3. ELIDEL [Suspect]
     Dosage: 30 G
     Route: 061
     Dates: start: 20040401, end: 20040601

REACTIONS (4)
  - ASTHENIA [None]
  - HODGKIN'S DISEASE MIXED CELLULARITY STAGE I SUPRADIAPHRAGMATIC [None]
  - INFECTIOUS MONONUCLEOSIS [None]
  - LYMPHADENOPATHY [None]
